FAERS Safety Report 15456485 (Version 1)
Quarter: 2018Q4

REPORT INFORMATION
  Report Type: Spontaneous
  Country: CA (occurrence: CA)
  Receive Date: 20181002
  Receipt Date: 20181002
  Transmission Date: 20190204
  Serious: Yes (Other)
  Sender: FDA-Public Use
  Company Number: PHHY2018CA108216

PATIENT
  Age: 89 Year
  Sex: Female

DRUGS (6)
  1. VITAMIN C [Interacting]
     Active Substance: ASCORBIC ACID
     Indication: SUPPLEMENTATION THERAPY
     Dosage: 500 MG, UNK
     Route: 065
  2. VITALUX AREDS [Suspect]
     Active Substance: MINERALS\VITAMINS
     Indication: AGE-RELATED MACULAR DEGENERATION
     Dosage: 1 DF, BID
     Route: 065
  3. APO-WARFARIN [Interacting]
     Active Substance: WARFARIN SODIUM
     Indication: ATRIAL FIBRILLATION
     Dosage: 3 MG, UNK
     Route: 065
  4. HYDROCHLOROTHIAZIDE. [Concomitant]
     Active Substance: HYDROCHLOROTHIAZIDE
     Indication: PRODUCT USED FOR UNKNOWN INDICATION
     Dosage: 25 MG, UNK
     Route: 065
  5. VITALUX AREDS [Interacting]
     Active Substance: MINERALS\VITAMINS
     Indication: PROPHYLAXIS
  6. VITAMIN D [Concomitant]
     Active Substance: CHOLECALCIFEROL
     Indication: SUPPLEMENTATION THERAPY
     Dosage: 1000 IU, UNK
     Route: 065

REACTIONS (2)
  - Drug interaction [Recovered/Resolved]
  - International normalised ratio increased [Recovered/Resolved]
